FAERS Safety Report 5957961-9 (Version None)
Quarter: 2008Q4

REPORT INFORMATION
  Report Type: 
  Country: None (occurrence: None)
  Receive Date: 20081119
  Receipt Date: 20081110
  Transmission Date: 20090506
  Serious: Yes (Life-Threatening, Hospitalization)
  Sender: FDA-Public Use
  Company Number: CH-ABBOTT-08P-151-0486778-00

PATIENT
  Age: 37 Year
  Sex: Female

DRUGS (4)
  1. VALPROATE SODIUM [Suspect]
     Indication: POISONING DELIBERATE
     Route: 048
     Dates: start: 20080328, end: 20080328
  2. VALPROATE SODIUM [Suspect]
     Indication: ACCIDENTAL EXPOSURE
  3. PHENOBARBITAL TAB [Concomitant]
     Indication: POISONING DELIBERATE
     Route: 065
  4. BENZODIAZEPINES [Concomitant]
     Indication: POISONING DELIBERATE
     Route: 065

REACTIONS (7)
  - ANOXIC ENCEPHALOPATHY [None]
  - BRADYCARDIA [None]
  - COMA [None]
  - DRUG LEVEL ABOVE THERAPEUTIC [None]
  - HYPOTENSION [None]
  - HYPOTHERMIA [None]
  - MULTIPLE DRUG OVERDOSE INTENTIONAL [None]
